FAERS Safety Report 17274329 (Version 1)
Quarter: 2020Q1

REPORT INFORMATION
  Report Type: Spontaneous
  Country: US (occurrence: US)
  Receive Date: 20191226
  Receipt Date: 20191226
  Transmission Date: 20200409
  Serious: No
  Sender: FDA-Public Use
  Company Number: None

PATIENT
  Age: 53 Year
  Sex: Female

DRUGS (1)
  1. TALTZ [Suspect]
     Active Substance: IXEKIZUMAB
     Indication: OSTEOARTHRITIS
     Route: 058
     Dates: start: 20190531

REACTIONS (3)
  - Product dose omission [None]
  - Pain [None]
  - Wrong technique in device usage process [None]

NARRATIVE: CASE EVENT DATE: 201912
